FAERS Safety Report 12500436 (Version 3)
Quarter: 2016Q3

REPORT INFORMATION
  Report Type: Spontaneous
  Country: US (occurrence: US)
  Receive Date: 20160627
  Receipt Date: 20160811
  Transmission Date: 20161109
  Serious: No
  Sender: FDA-Public Use
  Company Number: US-PFIZER INC-2016316339

PATIENT
  Age: 70 Year
  Sex: Male
  Weight: 62.99 kg

DRUGS (2)
  1. SUTENT [Suspect]
     Active Substance: SUNITINIB MALATE
     Indication: RENAL CANCER
     Dosage: 50 MG, CYCLIC (1 CAPSULE DAY1-DAY29 EVERY 42 DAYS)
     Route: 048
     Dates: start: 201508
  2. SUTENT [Suspect]
     Active Substance: SUNITINIB MALATE
     Dosage: 50 MG, CYCLIC (1CAP D1-28 Q 42 DAYS)
     Route: 048
     Dates: start: 20150820, end: 20160804

REACTIONS (8)
  - Yellow skin [Recovered/Resolved]
  - Decreased appetite [Unknown]
  - Hypogeusia [Unknown]
  - Skin fissures [Unknown]
  - Constipation [Unknown]
  - Pain in extremity [Unknown]
  - Weight decreased [Unknown]
  - Gait disturbance [Unknown]

NARRATIVE: CASE EVENT DATE: 201607
